FAERS Safety Report 4662547-2 (Version None)
Quarter: 2005Q2

REPORT INFORMATION
  Report Type: 
  Country: None (occurrence: None)
  Receive Date: 20050516
  Receipt Date: 20050516
  Transmission Date: 20051028
  Serious: Yes (Death)
  Sender: FDA-Public Use
  Company Number: None

PATIENT
  Age: 46 Year
  Sex: Female

DRUGS (3)
  1. MACRODANTIN [Suspect]
     Dates: start: 20000531, end: 20050201
  2. GLUCOSAMINE [Concomitant]
  3. VIT C TAB [Concomitant]

REACTIONS (11)
  - BRAIN OEDEMA [None]
  - FATIGUE [None]
  - HEPATIC ATROPHY [None]
  - HEPATIC FAILURE [None]
  - HEPATIC NECROSIS [None]
  - MENTAL IMPAIRMENT [None]
  - NAUSEA [None]
  - OCULAR ICTERUS [None]
  - PYREXIA [None]
  - SOMNOLENCE [None]
  - VOMITING [None]
